FAERS Safety Report 5097466-3 (Version None)
Quarter: 2006Q3

REPORT INFORMATION
  Report Type: 
  Country: None (occurrence: None)
  Receive Date: 20060901
  Receipt Date: 20060816
  Transmission Date: 20061208
  Serious: Yes (Hospitalization)
  Sender: FDA-Public Use
  Company Number: US200606003582

PATIENT
  Age: 47 Year
  Sex: Female
  Weight: 98 kg

DRUGS (6)
  1. ZYPREXA [Suspect]
     Indication: DEPRESSION
     Dosage: 2.5 MG; 5 MG
     Dates: start: 20010402, end: 20010622
  2. ZYPREXA [Suspect]
     Indication: DEPRESSION
     Dosage: 2.5 MG; 5 MG
     Dates: start: 20010622, end: 20030613
  3. CARBAMAZEPINE [Concomitant]
  4. CITALOPRAM HYDROBROMIDE [Concomitant]
  5. MIRTAZAPINE [Concomitant]
  6. ZOLOFT [Concomitant]

REACTIONS (7)
  - BLOOD TRIGLYCERIDES INCREASED [None]
  - DIABETES MELLITUS [None]
  - HYPERGLYCAEMIA [None]
  - HYPOGLYCAEMIA [None]
  - INJURY [None]
  - METABOLIC DISORDER [None]
  - MYOCARDIAL INFARCTION [None]
